FAERS Safety Report 4715228-0 (Version None)
Quarter: 2005Q3

REPORT INFORMATION
  Report Type: 
  Country: None (occurrence: None)
  Receive Date: 20050715
  Receipt Date: 20050623
  Transmission Date: 20060218
  Serious: Yes (Death)
  Sender: FDA-Public Use
  Company Number: US-ROCHE-408599

PATIENT
  Age: 63 Year
  Sex: Female
  Weight: 74.8 kg

DRUGS (2)
  1. CELLCEPT [Suspect]
     Indication: HEART TRANSPLANT
     Route: 048
     Dates: start: 19980615
  2. UNSPECIFIED MEDICATIONS [Concomitant]

REACTIONS (1)
  - PULMONARY EMBOLISM [None]
